FAERS Safety Report 19642848 (Version 1)
Quarter: 2021Q3

REPORT INFORMATION
  Report Type: Spontaneous
  Country: GR (occurrence: GR)
  Receive Date: 20210730
  Receipt Date: 20210730
  Transmission Date: 20211014
  Serious: Yes (Death, Other)
  Sender: FDA-Public Use
  Company Number: GR-PFIZER INC-202100939025

PATIENT

DRUGS (3)
  1. ZOLOFT [Suspect]
     Active Substance: SERTRALINE HYDROCHLORIDE
     Indication: DEPRESSION
     Dosage: 20 MG, 1X/DAY
     Route: 048
  2. LEXOTANIL [Concomitant]
     Active Substance: BROMAZEPAM
     Indication: DEPRESSION
  3. LEXOTANIL [Concomitant]
     Active Substance: BROMAZEPAM
     Indication: STRESS
     Dosage: 1.5 MG, 1X/DAY
     Route: 048

REACTIONS (1)
  - Urethral valves [Fatal]
